FAERS Safety Report 24784100 (Version 1)
Quarter: 2024Q4

REPORT INFORMATION
  Report Type: Other
  Country: CN (occurrence: CN)
  Receive Date: 20241227
  Receipt Date: 20241227
  Transmission Date: 20250114
  Serious: Yes (Other)
  Sender: INCYTE
  Company Number: CN-002147023-NVSC2024CN240958

PATIENT

DRUGS (2)
  1. RUXOLITINIB [Suspect]
     Active Substance: RUXOLITINIB
     Indication: Symptomatic treatment
     Dosage: 5 MG, BID
     Route: 048
     Dates: start: 20241120, end: 20241123
  2. FIBRINOGEN HUMAN [Concomitant]
     Active Substance: FIBRINOGEN HUMAN
     Indication: Symptomatic treatment
     Dosage: 0.5 G, QD (POWDER-INJECTION)
     Route: 041
     Dates: start: 20241120, end: 20241125

REACTIONS (1)
  - Myelosuppression [Recovered/Resolved]

NARRATIVE: CASE EVENT DATE: 20241123
